FAERS Safety Report 16941507 (Version 1)
Quarter: 2019Q4

REPORT INFORMATION
  Report Type: Spontaneous
  Country: GB (occurrence: GB)
  Receive Date: 20191021
  Receipt Date: 20191021
  Transmission Date: 20200122
  Serious: Yes (Death)
  Sender: FDA-Public Use
  Company Number: GB-MYLANLABS-2019M1098657

PATIENT
  Age: 62 Year

DRUGS (4)
  1. ASPARAGINASE [Interacting]
     Active Substance: ASPARAGINASE
     Indication: ACUTE LYMPHOCYTIC LEUKAEMIA
     Dosage: 1000 IU/M2, UNK
     Route: 065
  2. IMATINIB. [Interacting]
     Active Substance: IMATINIB MESYLATE
     Dosage: 600 MG, QD
     Route: 048
  3. IMATINIB. [Suspect]
     Active Substance: IMATINIB MESYLATE
     Indication: ACUTE LYMPHOCYTIC LEUKAEMIA
     Dosage: 400 MG, QD
     Route: 048
  4. DEXAMETHASONE. [Suspect]
     Active Substance: DEXAMETHASONE
     Indication: ACUTE LYMPHOCYTIC LEUKAEMIA
     Dosage: 6 MG/M2, QD
     Route: 065

REACTIONS (4)
  - Labelled drug-drug interaction medication error [Unknown]
  - Hepatotoxicity [Fatal]
  - Thrombosis [Fatal]
  - Intestinal ischaemia [Fatal]
